FAERS Safety Report 16282984 (Version 15)
Quarter: 2019Q4

REPORT INFORMATION
  Report Type: Report from Study
  Country: GB (occurrence: GB)
  Receive Date: 20190507
  Receipt Date: 20191126
  Transmission Date: 20200122
  Serious: Yes (Hospitalization, Other)
  Sender: FDA-Public Use
  Company Number: GB-EISAI MEDICAL RESEARCH-EC-2019-054441

PATIENT
  Age: 54 Year
  Sex: Male

DRUGS (11)
  1. LENVATINIB [Suspect]
     Active Substance: LENVATINIB
     Indication: HEPATOCELLULAR CARCINOMA
     Route: 048
     Dates: start: 20190326, end: 20190415
  2. PEMBROLIZUMAB. [Suspect]
     Active Substance: PEMBROLIZUMAB
     Indication: HEPATOCELLULAR CARCINOMA
     Route: 041
     Dates: start: 20190326, end: 20190326
  3. SITAGLIPTIN [Concomitant]
     Active Substance: SITAGLIPTIN
  4. GLICLAZIDE [Concomitant]
     Active Substance: GLICLAZIDE
  5. OMEPRAZOLE. [Concomitant]
     Active Substance: OMEPRAZOLE
  6. METHADONE [Concomitant]
     Active Substance: METHADONE HYDROCHLORIDE
  7. IBUPROFEN. [Concomitant]
     Active Substance: IBUPROFEN
  8. PREDNISOLONE. [Concomitant]
     Active Substance: PREDNISOLONE
  9. DIAZEPAM. [Concomitant]
     Active Substance: DIAZEPAM
  10. OLANZAPINE. [Concomitant]
     Active Substance: OLANZAPINE
  11. BUPRENORPHINE. [Concomitant]
     Active Substance: BUPRENORPHINE

REACTIONS (7)
  - Immune-mediated hepatitis [Recovering/Resolving]
  - Urinary tract infection [Recovered/Resolved]
  - Hepatic encephalopathy [Recovered/Resolved]
  - Dizziness [Not Recovered/Not Resolved]
  - Peripheral swelling [Not Recovered/Not Resolved]
  - Pneumonia [Recovered/Resolved]
  - Medication error [Recovered/Resolved]

NARRATIVE: CASE EVENT DATE: 20190326
